FAERS Safety Report 22691437 (Version 2)
Quarter: 2024Q2

REPORT INFORMATION
  Report Type: Report from Study
  Country: US (occurrence: US)
  Receive Date: 20230711
  Receipt Date: 20240526
  Transmission Date: 20240716
  Serious: No
  Sender: FDA-Public Use
  Company Number: US-SA-SAC20230710000664

PATIENT
  Age: 49 Year
  Sex: Female

DRUGS (4)
  1. DUPILUMAB [Suspect]
     Active Substance: DUPILUMAB
     Indication: Asthma
     Dosage: 200 MG, QOW
     Route: 058
     Dates: start: 20230629
  2. AIMOVIG [Concomitant]
     Active Substance: ERENUMAB-AOOE
  3. DULOXETINE [Concomitant]
     Active Substance: DULOXETINE
  4. TIZANIDINE HYDROCHLORIDE [Concomitant]
     Active Substance: TIZANIDINE HYDROCHLORIDE

REACTIONS (10)
  - Eyelid skin dryness [Not Recovered/Not Resolved]
  - Visual impairment [Unknown]
  - Eyelid rash [Unknown]
  - Eyelid exfoliation [Unknown]
  - Conjunctivitis [Unknown]
  - Arthropod sting [Not Recovered/Not Resolved]
  - Flatulence [Not Recovered/Not Resolved]
  - Orthopnoea [Not Recovered/Not Resolved]
  - Swelling face [Not Recovered/Not Resolved]
  - Asthma [Not Recovered/Not Resolved]

NARRATIVE: CASE EVENT DATE: 20230101
